FAERS Safety Report 16631513 (Version 1)
Quarter: 2019Q3

REPORT INFORMATION
  Report Type: Spontaneous
  Country: FR (occurrence: FR)
  Receive Date: 20190725
  Receipt Date: 20190725
  Transmission Date: 20191004
  Serious: Yes (Other)
  Sender: FDA-Public Use
  Company Number: FR-ALLERGAN-1929988US

PATIENT
  Sex: Female
  Weight: 46 kg

DRUGS (1)
  1. CEFTAZIDIME;AVIBACTAM - BP [Suspect]
     Active Substance: AVIBACTAM SODIUM\CEFTAZIDIME
     Indication: SKIN INFECTION
     Dosage: 6 G, QD
     Route: 042
     Dates: start: 20190405, end: 20190415

REACTIONS (1)
  - Cholestasis [Recovered/Resolved]
